FAERS Safety Report 8010018-8 (Version None)
Quarter: 2011Q4

REPORT INFORMATION
  Report Type: 
  Country: None (occurrence: None)
  Receive Date: 20111228
  Receipt Date: 20111214
  Transmission Date: 20120403
  Serious: Yes (Other)
  Sender: FDA-Public Use
  Company Number: US-ELI_LILLY_AND_COMPANY-US201008006294

PATIENT
  Sex: Female

DRUGS (17)
  1. FORTEO [Suspect]
     Dosage: 20 UG, DAILY (1/D)
     Route: 065
  2. PREDNISONE TAB [Concomitant]
  3. FORTEO [Suspect]
     Indication: OSTEOPOROSIS
     Dosage: 20 UG, QD
     Route: 065
     Dates: start: 20100813
  4. FORTEO [Suspect]
     Dosage: 20 UG, DAILY (1/D)
     Route: 065
  5. FORTEO [Suspect]
     Dosage: 20 UG, DAILY (1/D)
     Route: 065
  6. FORTEO [Suspect]
     Dosage: 20 UG, QD
     Route: 065
  7. FORTEO [Suspect]
     Dosage: 20 UG, DAILY (1/D)
     Route: 065
  8. CALCIUM ACETATE [Concomitant]
  9. FORTEO [Suspect]
     Dosage: 20 UG, QD
     Route: 065
  10. FORTEO [Suspect]
     Dosage: 20 UG, QD
     Route: 065
  11. FORTEO [Suspect]
     Dosage: 20 UG, DAILY (1/D)
     Route: 065
  12. FORTEO [Suspect]
     Dosage: 20 UG, DAILY (1/D)
     Route: 065
  13. FORTEO [Suspect]
     Dosage: 20 UG, DAILY (1/D)
     Route: 065
  14. FORTEO [Suspect]
     Dosage: 20 UG, QD
     Route: 065
  15. FORTEO [Suspect]
     Dosage: 20 UG, QD
  16. FORTEO [Suspect]
     Dosage: 20 UG, QD
     Route: 065
  17. VITAMIN D [Concomitant]

REACTIONS (24)
  - MIGRAINE [None]
  - DYSGEUSIA [None]
  - PAIN IN EXTREMITY [None]
  - JOINT INJURY [None]
  - BONE DISORDER [None]
  - EXOSTOSIS [None]
  - ARTHRALGIA [None]
  - INJECTION SITE PAIN [None]
  - NEUROLOGICAL SYMPTOM [None]
  - JOINT EFFUSION [None]
  - PAIN [None]
  - INJECTION SITE HAEMATOMA [None]
  - DRUG DOSE OMISSION [None]
  - VENOUS INJURY [None]
  - BONE PAIN [None]
  - VITAMIN D DECREASED [None]
  - FATIGUE [None]
  - INJECTION SITE NODULE [None]
  - SLEEP DISORDER DUE TO A GENERAL MEDICAL CONDITION [None]
  - CALCINOSIS [None]
  - SCREAMING [None]
  - LARYNGITIS [None]
  - INJECTION SITE ERYTHEMA [None]
  - MUSCLE SPASMS [None]
